FAERS Safety Report 7292832-X (Version None)
Quarter: 2011Q1

REPORT INFORMATION
  Report Type: 
  Country: None (occurrence: None)
  Receive Date: 20110215
  Receipt Date: 20110207
  Transmission Date: 20110831
  Serious: Yes (Hospitalization)
  Sender: FDA-Public Use
  Company Number: US-EISAI INC-E7389-01135-CLI-US

PATIENT
  Sex: Male
  Weight: 67 kg

DRUGS (18)
  1. ERLOTINIB [Concomitant]
     Indication: NON-SMALL CELL LUNG CANCER
     Route: 048
     Dates: start: 20101214, end: 20110117
  2. ALDACTONE [Concomitant]
     Indication: CARDIOMYOPATHY
     Route: 048
     Dates: start: 20100422
  3. MICONAZOLE [Concomitant]
     Indication: RASH
     Dates: start: 20101021
  4. MEGESTEROL [Concomitant]
     Route: 048
     Dates: start: 20101228
  5. LASIX [Concomitant]
     Indication: CARDIOMYOPATHY
     Route: 048
     Dates: start: 20100315
  6. VITAMIN D [Concomitant]
     Indication: VITAMIN D
     Route: 048
     Dates: start: 20100518
  7. VICODIN [Concomitant]
     Indication: PAIN
     Route: 048
     Dates: start: 20091029
  8. E7389 (BOLD) [Suspect]
     Indication: NON-SMALL CELL LUNG CANCER
     Route: 041
     Dates: start: 20101130, end: 20110125
  9. ALBUTEROL [Concomitant]
     Route: 045
     Dates: start: 20101021
  10. SPRIVIA [Concomitant]
     Dates: start: 20100308
  11. FINASTERIDE [Concomitant]
     Route: 048
     Dates: start: 20101214
  12. ASPIRIN [Concomitant]
     Indication: CARDIOMYOPATHY
     Route: 048
     Dates: start: 20101021
  13. PROCHLORPERAZINE [Concomitant]
     Indication: NAUSEA
     Route: 048
     Dates: start: 20101214
  14. TUMS [Concomitant]
     Route: 048
     Dates: start: 20100629
  15. CARVEDILOL [Concomitant]
     Indication: CARDIOMYOPATHY
     Route: 048
     Dates: start: 20101021
  16. LISINOPRIL [Concomitant]
     Indication: CARDIOMYOPATHY
     Route: 048
     Dates: start: 20100422
  17. M.V.I. [Concomitant]
     Indication: VITAMIN SUPPLEMENTATION
     Route: 048
     Dates: start: 20100629
  18. TEMAZEPAM [Concomitant]
     Indication: SLEEP DISORDER
     Route: 048
     Dates: start: 20091116

REACTIONS (1)
  - SEPSIS [None]
